FAERS Safety Report 20382166 (Version 1)
Quarter: 2022Q1

REPORT INFORMATION
  Report Type: Spontaneous
  Country: US (occurrence: None)
  Receive Date: 20220126
  Receipt Date: 20220126
  Transmission Date: 20220424
  Serious: No
  Sender: FDA-Public Use
  Company Number: None

PATIENT
  Age: 48 Year
  Sex: Female
  Weight: 66.6 kg

DRUGS (13)
  1. PRIVIGEN [Suspect]
     Active Substance: HUMAN IMMUNOGLOBULIN G
     Indication: Immunodeficiency common variable
     Dosage: OTHER FREQUENCY : EVERY 3 WEEKS;?
     Route: 041
  2. PRIVIGEN [Suspect]
     Active Substance: HUMAN IMMUNOGLOBULIN G
     Indication: Immunodeficiency common variable
     Dosage: OTHER FREQUENCY : EVERY 3 WEEKS;?
     Route: 041
     Dates: start: 20220105, end: 20220105
  3. restoril 15mg as needed [Concomitant]
     Dates: start: 20161027
  4. Montelukast 10mg daily [Concomitant]
     Dates: start: 20161226
  5. Flexeril       10mg three times a day as needed [Concomitant]
     Dates: start: 20161226
  6. Premphase 0.625 daily [Concomitant]
     Dates: start: 20170522
  7. Hemocyte Plus  106-1 MG daily [Concomitant]
     Dates: start: 20190829
  8. Nauzene 968-175-230 MG daily [Concomitant]
     Dates: start: 20190829
  9. Folic Acid   1mg daily [Concomitant]
     Dates: start: 20191007
  10. Vitamin B-12   daily [Concomitant]
     Dates: start: 20191007
  11. traZODone HCl    100mg daily at bedtime as needed [Concomitant]
     Dates: start: 20200526
  12. Pantoprazole Sodium 40mg daily [Concomitant]
     Dates: start: 20200720
  13. Crestor 10mg daily [Concomitant]
     Dates: start: 20211012

REACTIONS (5)
  - Dizziness [None]
  - Lethargy [None]
  - Nausea [None]
  - Influenza like illness [None]
  - Recalled product administered [None]

NARRATIVE: CASE EVENT DATE: 20220105
